FAERS Safety Report 15367263 (Version 2)
Quarter: 2018Q3

REPORT INFORMATION
  Report Type: Spontaneous
  Country: US (occurrence: US)
  Receive Date: 20180910
  Receipt Date: 20180917
  Transmission Date: 20181010
  Serious: Yes (Hospitalization)
  Sender: FDA-Public Use
  Company Number: US-ALKERMES INC.-ALK-2018-004754

PATIENT
  Age: 50 Year
  Sex: Male

DRUGS (1)
  1. VIVITROL [Suspect]
     Active Substance: NALTREXONE
     Indication: PRODUCT USED FOR UNKNOWN INDICATION
     Dosage: 380 MG, QMO
     Route: 030
     Dates: start: 20180802

REACTIONS (8)
  - Nephritis [Recovering/Resolving]
  - Gastritis [Recovering/Resolving]
  - Pleural effusion [Recovering/Resolving]
  - Gastrooesophageal reflux disease [Recovering/Resolving]
  - Barrett^s oesophagus [Recovering/Resolving]
  - Liver disorder [Recovering/Resolving]
  - Cystitis noninfective [Recovering/Resolving]
  - Pericardial effusion [Recovering/Resolving]

NARRATIVE: CASE EVENT DATE: 20180822
